FAERS Safety Report 26003842 (Version 2)
Quarter: 2025Q4

REPORT INFORMATION
  Report Type: Spontaneous
  Country: US (occurrence: US)
  Receive Date: 20251106
  Receipt Date: 20251118
  Transmission Date: 20260118
  Serious: Yes (Life-Threatening, Hospitalization)
  Sender: TEVA
  Company Number: US-TEVA-VS-3387382

PATIENT
  Age: 11 Year
  Sex: Male

DRUGS (8)
  1. EPINEPHRINE [Suspect]
     Active Substance: EPINEPHRINE
     Indication: Cardiac arrest
     Dosage: 2 DOSES
     Route: 065
  2. GABAPENTIN [Interacting]
     Active Substance: GABAPENTIN
     Indication: Seizure
     Route: 065
  3. PROPOFOL [Interacting]
     Active Substance: PROPOFOL
     Indication: Induction of anaesthesia
     Route: 042
  4. ROCURONIUM [Interacting]
     Active Substance: ROCURONIUM BROMIDE
     Indication: Induction of anaesthesia
     Route: 042
  5. SEVOFLURANE [Interacting]
     Active Substance: SEVOFLURANE
     Indication: Induction of anaesthesia
     Dosage: RESPIRATORY (INHALATION)
     Route: 065
  6. KETAMINE [Interacting]
     Active Substance: KETAMINE
     Indication: Induction of anaesthesia
     Route: 042
  7. FENTANYL [Interacting]
     Active Substance: FENTANYL
     Indication: Induction of anaesthesia
     Route: 042
  8. DEVICE [Suspect]
     Active Substance: DEVICE
     Route: 065

REACTIONS (4)
  - Toxicity to various agents [Recovered/Resolved]
  - Drug interaction [Unknown]
  - Cardiac arrest [Recovered/Resolved]
  - Stress cardiomyopathy [Recovered/Resolved]
